FAERS Safety Report 4433366-7 (Version None)
Quarter: 2004Q3

REPORT INFORMATION
  Report Type: 
  Country: None (occurrence: None)
  Receive Date: 20040824
  Receipt Date: 20040810
  Transmission Date: 20050211
  Serious: Yes (Hospitalization)
  Sender: FDA-Public Use
  Company Number: 2004229285GB

PATIENT
  Sex: Male

DRUGS (1)
  1. XALATAN [Suspect]
     Dosage: OPHTHALMIC
     Route: 047

REACTIONS (5)
  - FEELING HOT [None]
  - HEADACHE [None]
  - HERNIA [None]
  - INFLUENZA LIKE ILLNESS [None]
  - MYALGIA [None]
